FAERS Safety Report 10977272 (Version 2)
Quarter: 2015Q2

REPORT INFORMATION
  Report Type: Report from Study
  Country: US (occurrence: US)
  Receive Date: 20150402
  Receipt Date: 20150417
  Transmission Date: 20150821
  Serious: No
  Sender: FDA-Public Use
  Company Number: US-AMGEN-USASL2015029966

PATIENT
  Age: 60 Year
  Sex: Male

DRUGS (2)
  1. METHOTREXATE [Concomitant]
     Active Substance: METHOTREXATE
     Dosage: UNKWEEKLY
  2. ENBREL [Suspect]
     Active Substance: ETANERCEPT
     Indication: RHEUMATOID ARTHRITIS
     Dosage: 50 MG, QWK
     Route: 065
     Dates: start: 2012

REACTIONS (7)
  - Skin discolouration [Recovered/Resolved]
  - Localised infection [Recovered/Resolved]
  - Musculoskeletal pain [Not Recovered/Not Resolved]
  - Arthralgia [Not Recovered/Not Resolved]
  - Animal bite [Not Recovered/Not Resolved]
  - Blood pressure abnormal [Unknown]
  - Skin abrasion [Unknown]

NARRATIVE: CASE EVENT DATE: 201409
